FAERS Safety Report 8470427-X (Version None)
Quarter: 2012Q2

REPORT INFORMATION
  Report Type: 
  Country: None (occurrence: None)
  Receive Date: 20120627
  Receipt Date: 20120618
  Transmission Date: 20120825
  Serious: Yes (Disabling)
  Sender: FDA-Public Use
  Company Number: US-SANOFI-AVENTIS-2012SA043686

PATIENT
  Age: 72 Year
  Sex: Male
  Weight: 109.1 kg

DRUGS (1)
  1. PLAVIX [Suspect]
     Indication: POOR PERIPHERAL CIRCULATION

REACTIONS (3)
  - BLINDNESS [None]
  - IMPAIRED WORK ABILITY [None]
  - VISUAL ACUITY REDUCED [None]
